FAERS Safety Report 8846165 (Version 1)
Quarter: 2012Q4

REPORT INFORMATION
  Report Type: 
  Country: US (occurrence: US)
  Receive Date: 20121017
  Receipt Date: 20121017
  Transmission Date: 20130627
  Serious: Yes (Other)
  Sender: FDA-Public Use
  Company Number: US-PFIZER INC-2012257563

PATIENT
  Age: 48 Year
  Sex: Male
  Weight: 70.3 kg

DRUGS (6)
  1. LYRICA [Suspect]
     Indication: FIBROMYALGIA
     Dosage: 25 mg, 2x/day
     Route: 048
  2. LYRICA [Suspect]
     Dosage: 50 mg, 2x/day
     Route: 048
  3. LYRICA [Suspect]
     Dosage: UNK
     Route: 048
  4. XANAX [Suspect]
     Indication: POST-TRAUMATIC STRESS DISORDER
     Dosage: UNK, 1x/day
  5. SYNTHROID [Concomitant]
     Indication: HYPOTHYROIDISM
     Dosage: 50 ug, UNK
  6. PRILOSEC [Concomitant]
     Indication: GASTROOESOPHAGEAL REFLUX DISEASE
     Dosage: UNK

REACTIONS (8)
  - Ataxia [Recovered/Resolved]
  - Loss of control of legs [Unknown]
  - Movement disorder [Unknown]
  - Balance disorder [Unknown]
  - Asthma [Unknown]
  - Therapeutic response unexpected [Unknown]
  - Withdrawal syndrome [Recovered/Resolved]
  - Protein total decreased [Unknown]
